FAERS Safety Report 8931383 (Version 1)
Quarter: 2012Q4

REPORT INFORMATION
  Report Type: 
  Country: US (occurrence: US)
  Receive Date: 20121128
  Receipt Date: 20121128
  Transmission Date: 20130627
  Serious: Yes (Other)
  Sender: FDA-Public Use
  Company Number: US-PFIZER INC-2012297437

PATIENT
  Sex: Female
  Weight: 78.46 kg

DRUGS (3)
  1. PREMARIN [Suspect]
     Indication: HRT
     Dosage: 1.25 mg, 1x/day
     Dates: start: 1981
  2. NORVASC [Concomitant]
     Indication: BLOOD PRESSURE HIGH
     Dosage: 5 mg, 1x/day
  3. LASIX [Concomitant]
     Indication: BLOOD PRESSURE HIGH
     Dosage: 20 mg, 2x/day

REACTIONS (2)
  - Systemic lupus erythematosus [Not Recovered/Not Resolved]
  - Fibromyalgia [Not Recovered/Not Resolved]
